FAERS Safety Report 5592644-9 (Version None)
Quarter: 2008Q1

REPORT INFORMATION
  Report Type: 
  Country: None (occurrence: None)
  Receive Date: 20080115
  Receipt Date: 20080110
  Transmission Date: 20080703
  Serious: Yes (Hospitalization)
  Sender: FDA-Public Use
  Company Number: US-BOEHRINGER INGELHEIM PHARMACEUTICALS, INC.-2007-BP-21202BP

PATIENT
  Age: 80 Year
  Sex: Male
  Weight: 74 kg

DRUGS (7)
  1. MIRAPEX [Suspect]
     Indication: PARKINSON'S DISEASE
     Route: 048
     Dates: start: 20070822, end: 20070831
  2. MIRAPEX [Suspect]
     Indication: TREMOR
  3. SINEMET [Concomitant]
     Route: 048
  4. SINEMET CR [Concomitant]
     Route: 048
  5. COMTAN [Concomitant]
     Route: 048
  6. ZOCOR [Concomitant]
     Route: 048
  7. AGGRENOX [Concomitant]
     Dosage: 1 TAB BID
     Route: 048

REACTIONS (1)
  - TREMOR [None]
